APPROVED DRUG PRODUCT: MIRTAZAPINE
Active Ingredient: MIRTAZAPINE
Strength: 45MG
Dosage Form/Route: TABLET;ORAL
Application: A076541 | Product #003 | TE Code: AB
Applicant: SUN PHARMACEUTICAL INDUSTRIES INC
Approved: Apr 22, 2004 | RLD: No | RS: No | Type: RX